FAERS Safety Report 11373163 (Version 1)
Quarter: 2015Q3

REPORT INFORMATION
  Report Type: Spontaneous
  Country: US (occurrence: US)
  Receive Date: 20150811
  Receipt Date: 20150811
  Transmission Date: 20151125
  Serious: No
  Sender: FDA-Public Use
  Company Number: US-ELI_LILLY_AND_COMPANY-US201207002928

PATIENT
  Age: 60 Year
  Sex: Male
  Weight: 99.77 kg

DRUGS (3)
  1. VIAGRA [Concomitant]
     Active Substance: SILDENAFIL CITRATE
     Indication: ERECTILE DYSFUNCTION
     Dosage: 1 DF, PRN
     Dates: start: 2002, end: 20120624
  2. CIALIS [Suspect]
     Active Substance: TADALAFIL
     Indication: ERECTILE DYSFUNCTION
     Dosage: 1 DF, PRN
     Dates: start: 2010, end: 20120624
  3. ALCOHOL. [Concomitant]
     Active Substance: ALCOHOL
     Dosage: 1 DF, UNKNOWN

REACTIONS (9)
  - Gastrointestinal haemorrhage [Unknown]
  - Gastritis [Unknown]
  - Faeces discoloured [Unknown]
  - Counterfeit drug administered [Unknown]
  - Metal poisoning [Unknown]
  - Malaise [Recovered/Resolved]
  - Dyspepsia [Unknown]
  - Vomiting [Recovered/Resolved]
  - Gastrooesophageal reflux disease [Unknown]

NARRATIVE: CASE EVENT DATE: 201204
